FAERS Safety Report 7046817-9 (Version None)
Quarter: 2010Q4

REPORT INFORMATION
  Report Type: 
  Country: None (occurrence: None)
  Receive Date: 20101015
  Receipt Date: 20101007
  Transmission Date: 20110411
  Serious: Yes (Other)
  Sender: FDA-Public Use
  Company Number: PH-JNJFOC-20101002270

PATIENT
  Sex: Male

DRUGS (1)
  1. DOLCET [Suspect]
     Indication: PROCEDURAL PAIN
     Route: 065

REACTIONS (3)
  - DIZZINESS [None]
  - DYSURIA [None]
  - VOMITING [None]
